FAERS Safety Report 4966846-6 (Version None)
Quarter: 2006Q2

REPORT INFORMATION
  Report Type: 
  Country: None (occurrence: None)
  Receive Date: 20060407
  Receipt Date: 20060329
  Transmission Date: 20061013
  Serious: Yes (Death, Life-Threatening, Congenital Anomaly, Other)
  Sender: FDA-Public Use
  Company Number: FR-MERCK-0604FRA00003B1

PATIENT

DRUGS (1)
  1. COZAAR [Suspect]
     Indication: HYPERTENSION

REACTIONS (11)
  - ANGIOPATHY [None]
  - ANURIA [None]
  - CONGENITAL ANOMALY [None]
  - CONTRACTED BLADDER [None]
  - DEATH NEONATAL [None]
  - DRUG EXPOSURE DURING PREGNANCY [None]
  - GASTROINTESTINAL DISORDER [None]
  - GROWTH RETARDATION [None]
  - HYPOTENSION [None]
  - RENAL DYSPLASIA [None]
  - RESPIRATORY FAILURE [None]
